FAERS Safety Report 23072994 (Version 3)
Quarter: 2025Q3

REPORT INFORMATION
  Report Type: Report from Study
  Country: CA (occurrence: CA)
  Receive Date: 20231017
  Receipt Date: 20250912
  Transmission Date: 20251020
  Serious: Yes (Other)
  Sender: TAKEDA
  Company Number: CA-TAKEDA-2023TUS098223

PATIENT
  Sex: Male

DRUGS (8)
  1. VEDOLIZUMAB [Suspect]
     Active Substance: VEDOLIZUMAB
     Indication: Crohn^s disease
  2. VEDOLIZUMAB [Suspect]
     Active Substance: VEDOLIZUMAB
  3. VEDOLIZUMAB [Suspect]
     Active Substance: VEDOLIZUMAB
  4. CORTISONE [Concomitant]
     Active Substance: CORTISONE
     Dosage: UNK UNK, QD
     Dates: start: 20210304
  5. PREDNISONE [Concomitant]
     Active Substance: PREDNISONE
  6. ZOPICLONE [Concomitant]
     Active Substance: ZOPICLONE
  7. CLONAZEPAM [Concomitant]
     Active Substance: CLONAZEPAM
  8. CITALOPRAM [Concomitant]
     Active Substance: CITALOPRAM

REACTIONS (4)
  - Haematochezia [Not Recovered/Not Resolved]
  - Crohn^s disease [Unknown]
  - Nasopharyngitis [Unknown]
  - Diarrhoea [Not Recovered/Not Resolved]
